FAERS Safety Report 20690320 (Version 3)
Quarter: 2022Q2

REPORT INFORMATION
  Report Type: Spontaneous
  Country: NL (occurrence: NL)
  Receive Date: 20220408
  Receipt Date: 20220608
  Transmission Date: 20220721
  Serious: Yes (Other)
  Sender: FDA-Public Use
  Company Number: NL-BEH-2022141328

PATIENT
  Age: 38 Year
  Sex: Female
  Weight: 88 kg

DRUGS (4)
  1. RHOPHYLAC [Suspect]
     Active Substance: HUMAN RHO(D) IMMUNE GLOBULIN
     Indication: Rhesus antibodies positive
     Dosage: 1000 INTERNATIONAL UNIT
     Route: 030
     Dates: start: 20220107, end: 20220107
  2. RHOPHYLAC [Suspect]
     Active Substance: HUMAN RHO(D) IMMUNE GLOBULIN
     Indication: Rhesus antibodies positive
     Dosage: 1000 INTERNATIONAL UNIT
     Route: 030
     Dates: start: 20220107, end: 20220107
  3. RHOPHYLAC [Suspect]
     Active Substance: HUMAN RHO(D) IMMUNE GLOBULIN
     Indication: Rhesus incompatibility
     Dosage: 1000 INTERNATIONAL UNIT
     Route: 065
     Dates: start: 20220401
  4. RHOPHYLAC [Suspect]
     Active Substance: HUMAN RHO(D) IMMUNE GLOBULIN
     Indication: Rhesus incompatibility
     Dosage: 1000 INTERNATIONAL UNIT
     Route: 065
     Dates: start: 20220401

REACTIONS (7)
  - Pre-eclampsia [Recovered/Resolved]
  - No adverse event [Recovered/Resolved]
  - Expired product administered [Recovered/Resolved]
  - Maternal exposure during pregnancy [Recovered/Resolved]
  - Gestational hypertension [Unknown]
  - Maternal exposure during pregnancy [Unknown]
  - Maternal exposure during pregnancy [Recovered/Resolved]

NARRATIVE: CASE EVENT DATE: 20220107
